FAERS Safety Report 5951425-4 (Version None)
Quarter: 2008Q4

REPORT INFORMATION
  Report Type: 
  Country: None (occurrence: None)
  Receive Date: 20081111
  Receipt Date: 20081111
  Transmission Date: 20090506
  Serious: No
  Sender: FDA-Public Use
  Company Number: None

PATIENT
  Age: 45 Year
  Sex: Female
  Weight: 60 kg

DRUGS (2)
  1. DEXAMETHASONE [Suspect]
     Indication: CONJUNCTIVITIS
     Dosage: 2 DROPS Q6H OPHTHALMIC
     Route: 047
     Dates: start: 20081108, end: 20081110
  2. DEXAMETHASONE [Suspect]
     Indication: PROPHYLAXIS
     Dosage: 2 DROPS Q6H OPHTHALMIC
     Route: 047
     Dates: start: 20081108, end: 20081110

REACTIONS (2)
  - EYE IRRITATION [None]
  - OCULAR HYPERAEMIA [None]
